FAERS Safety Report 18092009 (Version 1)
Quarter: 2020Q3

REPORT INFORMATION
  Report Type: Spontaneous
  Country: US (occurrence: US)
  Receive Date: 20200728
  Receipt Date: 20200728
  Transmission Date: 20201103
  Serious: No
  Sender: FDA-Public Use
  Company Number: None

PATIENT
  Age: 41 Year
  Sex: Female
  Weight: 81.65 kg

DRUGS (2)
  1. CYPRESS HEMP CBD OMEGAS [Suspect]
     Active Substance: CANNABIDIOL\HERBALS
     Indication: SEIZURE
     Route: 048
     Dates: start: 20200522, end: 20200526
  2. CYPRESS HEMP CBD OMEGAS [Suspect]
     Active Substance: CANNABIDIOL\HERBALS
     Indication: MULTIPLE SCLEROSIS
     Route: 048
     Dates: start: 20200522, end: 20200526

REACTIONS (5)
  - Vomiting [None]
  - Dyspepsia [None]
  - Rash [None]
  - Headache [None]
  - Illness [None]

NARRATIVE: CASE EVENT DATE: 20200522
